FAERS Safety Report 21064467 (Version 1)
Quarter: 2022Q3

REPORT INFORMATION
  Report Type: Report from Study
  Country: KR (occurrence: KR)
  Receive Date: 20220711
  Receipt Date: 20220711
  Transmission Date: 20221027
  Serious: Yes (Other)
  Sender: FDA-Public Use
  Company Number: KR-JNJFOC-20220662120

PATIENT

DRUGS (2)
  1. BORTEZOMIB [Suspect]
     Active Substance: BORTEZOMIB
     Indication: Ovarian cancer
     Dosage: 1.3 MILLIGRAM/SQ. METER, Q4WEEKS
     Route: 058
  2. DOXORUBICIN [Suspect]
     Active Substance: DOXORUBICIN
     Indication: Ovarian cancer
     Dosage: 40 MILLIGRAM/SQ. METER, Q4WEEKS
     Route: 042

REACTIONS (31)
  - Pyelonephritis acute [Unknown]
  - Hepatic enzyme increased [Unknown]
  - Mucosal inflammation [Unknown]
  - Chest pain [Unknown]
  - Abdominal pain [Unknown]
  - Anaemia [Unknown]
  - Thrombocytopenia [Unknown]
  - Herpes zoster [Unknown]
  - Neutropenia [Unknown]
  - Decreased appetite [Unknown]
  - Diarrhoea [Unknown]
  - Dyspepsia [Unknown]
  - Stomatitis [Unknown]
  - Pruritus [Unknown]
  - Dysaesthesia [Unknown]
  - Alopecia [Unknown]
  - Vision blurred [Unknown]
  - Constipation [Unknown]
  - Dizziness [Unknown]
  - Fatigue [Unknown]
  - Pyrexia [Unknown]
  - Insomnia [Unknown]
  - Myalgia [Unknown]
  - Nausea [Unknown]
  - Peripheral sensory neuropathy [Unknown]
  - Pleural effusion [Unknown]
  - Rash [Unknown]
  - Vomiting [Unknown]
  - Purpura [Unknown]
  - Infusion related reaction [Unknown]
  - Off label use [Unknown]
